FAERS Safety Report 11972110 (Version 3)
Quarter: 2016Q1

REPORT INFORMATION
  Report Type: Spontaneous
  Country: DE (occurrence: DE)
  Receive Date: 20160128
  Receipt Date: 20160328
  Transmission Date: 20160526
  Serious: Yes (Hospitalization)
  Sender: FDA-Public Use
  Company Number: PHHY2016DE008728

PATIENT
  Sex: Female
  Weight: 90 kg

DRUGS (3)
  1. AFINITOR [Concomitant]
     Active Substance: EVEROLIMUS
     Indication: BREAST CANCER METASTATIC
     Dosage: 10 MG, QD (DIALY)
     Route: 065
     Dates: start: 20140912, end: 20151120
  2. ZOLEDRONSAURE HEXAL [Suspect]
     Active Substance: ZOLEDRONIC ACID
     Indication: METASTASES TO BONE
     Dosage: 4 MG, QMO
     Route: 042
     Dates: start: 20130920
  3. EXEMESTANE. [Concomitant]
     Active Substance: EXEMESTANE
     Indication: PRODUCT USED FOR UNKNOWN INDICATION
     Route: 065
     Dates: start: 20140211

REACTIONS (4)
  - Osteonecrosis of jaw [Recovered/Resolved]
  - Swelling [Unknown]
  - Exposed bone in jaw [Unknown]
  - Erythema [Unknown]

NARRATIVE: CASE EVENT DATE: 20150912
